FAERS Safety Report 20774277 (Version 1)
Quarter: 2022Q2

REPORT INFORMATION
  Report Type: Spontaneous
  Country: US (occurrence: None)
  Receive Date: 20220429
  Receipt Date: 20220429
  Transmission Date: 20220721
  Serious: Yes (Other)
  Sender: FDA-Public Use
  Company Number: None

PATIENT
  Age: 52 Year
  Sex: Female
  Weight: 54 kg

DRUGS (5)
  1. ALENDRONATE SODIUM [Suspect]
     Active Substance: ALENDRONATE SODIUM
     Indication: Osteoporosis
     Dosage: OTHER QUANTITY : 1 TABLET(S);?
     Route: 048
     Dates: start: 20220427, end: 20220427
  2. SYNTHROID [Concomitant]
     Active Substance: LEVOTHYROXINE SODIUM
  3. VITAMIN D [Concomitant]
     Active Substance: VITAMIN D NOS
  4. Vitamin E [Concomitant]
  5. VITAMIN K [Concomitant]
     Active Substance: PHYTONADIONE

REACTIONS (12)
  - Arthralgia [None]
  - Back pain [None]
  - Pain in extremity [None]
  - Pain in extremity [None]
  - Pain in extremity [None]
  - Chest pain [None]
  - Pyrexia [None]
  - Burning sensation [None]
  - Pain [None]
  - Screaming [None]
  - Middle insomnia [None]
  - Pain of skin [None]

NARRATIVE: CASE EVENT DATE: 20220427
